FAERS Safety Report 25263060 (Version 1)
Quarter: 2025Q2

REPORT INFORMATION
  Report Type: Spontaneous
  Country: GB (occurrence: GB)
  Receive Date: 20250502
  Receipt Date: 20250502
  Transmission Date: 20250716
  Serious: Yes (Disabling)
  Sender: TEVA
  Company Number: GB-MHRA-TPP47389612C11582668YC1745852736906

PATIENT
  Age: 82 Year
  Sex: Female
  Weight: 63 kg

DRUGS (4)
  1. EZETIMIBE [Suspect]
     Active Substance: EZETIMIBE
     Indication: Ill-defined disorder
     Route: 048
     Dates: start: 20240604, end: 20250428
  2. OMEPRAZOLE [Concomitant]
     Active Substance: OMEPRAZOLE
     Indication: Ill-defined disorder
     Dosage: FOR 2 MONTHS
     Route: 048
     Dates: start: 20250326
  3. LANSOPRAZOLE [Concomitant]
     Active Substance: LANSOPRAZOLE
     Indication: Ill-defined disorder
     Route: 048
     Dates: start: 20240130, end: 20250326
  4. CLINITAS [Concomitant]
     Indication: Ill-defined disorder
     Route: 061
     Dates: start: 20240130

REACTIONS (2)
  - Vomiting [Recovered/Resolved]
  - Nausea [Unknown]

NARRATIVE: CASE EVENT DATE: 20250428
